FAERS Safety Report 24444925 (Version 2)
Quarter: 2024Q4

REPORT INFORMATION
  Report Type: Report from Study
  Country: ZA (occurrence: ZA)
  Receive Date: 20241016
  Receipt Date: 20241017
  Transmission Date: 20250114
  Serious: No
  Sender: ROCHE
  Company Number: ZA-ROCHE-2944751

PATIENT
  Age: 49 Year
  Sex: Female
  Weight: 55.0 kg

DRUGS (6)
  1. MABTHERA [Suspect]
     Active Substance: RITUXIMAB
     Indication: Rheumatoid arthritis
     Route: 065
     Dates: start: 201807
  2. MABTHERA [Suspect]
     Active Substance: RITUXIMAB
     Indication: Systemic scleroderma
  3. MABTHERA [Suspect]
     Active Substance: RITUXIMAB
     Indication: Arthritis
  4. RITUXIMAB [Suspect]
     Active Substance: RITUXIMAB
     Indication: Rheumatoid arthritis
     Dosage: EVERY 6 MONTHS
     Route: 041
     Dates: start: 20230901
  5. RITUXIMAB [Suspect]
     Active Substance: RITUXIMAB
     Indication: Scleroderma
  6. RITUXIMAB [Suspect]
     Active Substance: RITUXIMAB
     Indication: Interstitial lung disease

REACTIONS (6)
  - Off label use [Unknown]
  - C-reactive protein increased [Unknown]
  - Haemoglobin decreased [Unknown]
  - Platelet count increased [Unknown]
  - Blood creatinine increased [Unknown]
  - Hypersensitivity [Unknown]

NARRATIVE: CASE EVENT DATE: 20211021
